FAERS Safety Report 5944236-7 (Version None)
Quarter: 2008Q4

REPORT INFORMATION
  Report Type: 
  Country: None (occurrence: None)
  Receive Date: 20081106
  Receipt Date: 20081029
  Transmission Date: 20090506
  Serious: Yes (Other)
  Sender: FDA-Public Use
  Company Number: US-GILEAD-2008-0018758

PATIENT
  Age: 40 Year
  Sex: Male
  Weight: 45.4 kg

DRUGS (5)
  1. TRUVADA [Suspect]
     Indication: ACQUIRED IMMUNODEFICIENCY SYNDROME
  2. BOOSTED PROTEASE INHIBITOR [Concomitant]
     Indication: ACQUIRED IMMUNODEFICIENCY SYNDROME
  3. AZITHROMYCIN [Concomitant]
  4. SULFAMETHOXAZOLE AND TRIMETHOPRIM [Concomitant]
  5. OPIOIDS [Concomitant]

REACTIONS (8)
  - DEHYDRATION [None]
  - ENCEPHALOPATHY [None]
  - HYPOPHAGIA [None]
  - MYELOPATHY [None]
  - PYREXIA [None]
  - RENAL ATROPHY [None]
  - RENAL FAILURE [None]
  - SUPRAVENTRICULAR TACHYCARDIA [None]
